FAERS Safety Report 6309350-5 (Version None)
Quarter: 2009Q3

REPORT INFORMATION
  Report Type: 
  Country: None (occurrence: None)
  Receive Date: 20090814
  Receipt Date: 20090803
  Transmission Date: 20100115
  Serious: Yes (Other)
  Sender: FDA-Public Use
  Company Number: US-ROCHE-433381

PATIENT
  Age: 54 Year
  Sex: Male
  Weight: 74.8 kg

DRUGS (8)
  1. PEGASYS [Suspect]
     Route: 058
     Dates: start: 19970101, end: 20040401
  2. PEGASYS [Suspect]
     Dosage: STRENGTH AND FORMULATION REPORTED AS 180MCG/0.5ML FOR FIVE YEARS
     Route: 058
     Dates: start: 20040401
  3. COPEGUS [Suspect]
     Route: 048
     Dates: end: 20040101
  4. COPEGUS [Suspect]
     Dosage: LOWERED
     Route: 048
  5. COPEGUS [Suspect]
     Dosage: LOWERED
     Route: 048
  6. COPEGUS [Suspect]
     Route: 048
  7. COPEGUS [Suspect]
     Dosage: INCREASED
     Route: 048
  8. COPEGUS [Suspect]
     Route: 048
     Dates: start: 20051101, end: 20060123

REACTIONS (6)
  - DRUG DOSE OMISSION [None]
  - HAEMOGLOBIN DECREASED [None]
  - HEPATIC NEOPLASM MALIGNANT [None]
  - NO THERAPEUTIC RESPONSE [None]
  - PLATELET COUNT DECREASED [None]
  - THYROID DISORDER [None]
